FAERS Safety Report 15249701 (Version 1)
Quarter: 2018Q3

REPORT INFORMATION
  Report Type: Spontaneous
  Country: US (occurrence: US)
  Receive Date: 20180716
  Receipt Date: 20180716
  Transmission Date: 20181010
  Serious: Yes (Hospitalization)
  Sender: FDA-Public Use
  Company Number: None

PATIENT
  Age: 64 Year
  Sex: Female

DRUGS (8)
  1. HYDROCLOROT [Concomitant]
  2. DONEPEZIL. [Concomitant]
     Active Substance: DONEPEZIL
  3. ALEVE [Concomitant]
     Active Substance: NAPROXEN SODIUM
  4. ADVIL [Concomitant]
     Active Substance: IBUPROFEN
  5. REBIF [Suspect]
     Active Substance: INTERFERON BETA-1A
     Indication: MULTIPLE SCLEROSIS
     Route: 058
     Dates: start: 20180619
  6. PREMARIN [Concomitant]
     Active Substance: ESTROGENS, CONJUGATED
  7. NIFEDIPINE. [Concomitant]
     Active Substance: NIFEDIPINE
  8. ASPIRIN. [Concomitant]
     Active Substance: ASPIRIN

REACTIONS (5)
  - Dizziness [None]
  - Dehydration [None]
  - Pulmonary congestion [None]
  - Blood pressure inadequately controlled [None]
  - Fall [None]

NARRATIVE: CASE EVENT DATE: 20180629
